FAERS Safety Report 7309217-X (Version None)
Quarter: 2011Q1

REPORT INFORMATION
  Report Type: 
  Country: None (occurrence: None)
  Receive Date: 20110223
  Receipt Date: 20110217
  Transmission Date: 20110831
  Serious: Yes (Death, Other)
  Sender: FDA-Public Use
  Company Number: JP-CEPHALON-2011000817

PATIENT
  Sex: Female

DRUGS (1)
  1. BENDAMUSTINE HCL [Suspect]
     Indication: B-CELL LYMPHOMA
     Route: 041
     Dates: start: 20110106, end: 20110107

REACTIONS (2)
  - LEUKOPENIA [None]
  - INFECTION [None]
